FAERS Safety Report 21459334 (Version 1)
Quarter: 2022Q4

REPORT INFORMATION
  Report Type: Spontaneous
  Country: US (occurrence: US)
  Receive Date: 20221014
  Receipt Date: 20221014
  Transmission Date: 20230112
  Serious: Yes (Hospitalization, Other)
  Sender: FDA-Public Use
  Company Number: US-TRIS PHARMA, INC.-22US010478

PATIENT

DRUGS (4)
  1. RISPERIDONE [Suspect]
     Active Substance: RISPERIDONE
     Indication: Anxiety
     Dosage: 0.25 MILLIGRAM, BID
  2. SERTRALINE [Suspect]
     Active Substance: SERTRALINE HYDROCHLORIDE
     Indication: Anxiety
     Dosage: 50 MILLIGRAM, QD
  3. SERTRALINE [Suspect]
     Active Substance: SERTRALINE HYDROCHLORIDE
     Dosage: 100 MILLIGRAM, QD
  4. CLONAZEPAM [Suspect]
     Active Substance: CLONAZEPAM
     Indication: Product used for unknown indication
     Dosage: 1 MILLIGRAM, BID

REACTIONS (13)
  - White blood cell count increased [Recovering/Resolving]
  - Infection [Unknown]
  - Adjustment disorder with anxiety [Unknown]
  - Tachypnoea [Unknown]
  - Hypoxia [Unknown]
  - Benign neoplasm of thyroid gland [Recovered/Resolved]
  - Ventricular hypokinesia [Unknown]
  - Right ventricular dilatation [Unknown]
  - Pulmonary hypertension [Unknown]
  - Priapism [Recovered/Resolved]
  - Pulmonary embolism [Unknown]
  - Sinus tachycardia [Unknown]
  - Tachycardia [Unknown]
